FAERS Safety Report 18519700 (Version 1)
Quarter: 2020Q4

REPORT INFORMATION
  Report Type: Spontaneous
  Country: DE (occurrence: DE)
  Receive Date: 20201119
  Receipt Date: 20201119
  Transmission Date: 20210114
  Serious: Yes (Other)
  Sender: FDA-Public Use
  Company Number: DE-ROCHE-2711481

PATIENT
  Sex: Female

DRUGS (1)
  1. XOLAIR [Suspect]
     Active Substance: OMALIZUMAB
     Indication: CHRONIC SPONTANEOUS URTICARIA
     Dosage: 150 MG EVERY 4 WEEKS
     Route: 065
     Dates: start: 202010

REACTIONS (3)
  - Arthralgia [Unknown]
  - Abdominal pain upper [Unknown]
  - Angioedema [Unknown]

NARRATIVE: CASE EVENT DATE: 202010
